FAERS Safety Report 7161680-3 (Version None)
Quarter: 2010Q4

REPORT INFORMATION
  Report Type: 
  Country: None (occurrence: None)
  Receive Date: 20101215
  Receipt Date: 20101210
  Transmission Date: 20110411
  Serious: Yes (Hospitalization, Other)
  Sender: FDA-Public Use
  Company Number: US-PFIZER INC-2010101467

PATIENT
  Sex: Male

DRUGS (4)
  1. CHANTIX [Suspect]
     Indication: SMOKING CESSATION THERAPY
     Dosage: UNK
     Dates: start: 20080701
  2. CHANTIX [Suspect]
     Dosage: 1 MG, 2X/DAY
     Dates: start: 20090715, end: 20090808
  3. SEROQUEL [Concomitant]
     Indication: BIPOLAR DISORDER
     Dosage: UNK
     Dates: start: 20080801, end: 20100101
  4. LAMOTRIGINE [Concomitant]
     Indication: BIPOLAR DISORDER
     Dosage: UNK
     Dates: start: 20080801

REACTIONS (9)
  - ABNORMAL DREAMS [None]
  - ANXIETY [None]
  - DELUSION [None]
  - DEPRESSION [None]
  - HOSTILITY [None]
  - INTENTIONAL OVERDOSE [None]
  - MANIA [None]
  - PARANOIA [None]
  - SUICIDE ATTEMPT [None]
